FAERS Safety Report 7365875-5 (Version None)
Quarter: 2011Q1

REPORT INFORMATION
  Report Type: 
  Country: None (occurrence: None)
  Receive Date: 20110316
  Receipt Date: 20110316
  Transmission Date: 20110831
  Serious: Yes (Other)
  Sender: FDA-Public Use
  Company Number: None

PATIENT
  Age: 60 Year
  Sex: Male
  Weight: 120.2032 kg

DRUGS (2)
  1. NUVIGIL [Suspect]
     Indication: DEPRESSION
     Dosage: 250 MG DAILY PO
     Route: 048
     Dates: start: 20091010, end: 20110115
  2. NUVIGIL [Suspect]
     Indication: SOMNOLENCE
     Dosage: 250 MG DAILY PO
     Route: 048
     Dates: start: 20091010, end: 20110115

REACTIONS (2)
  - DEREALISATION [None]
  - ANXIETY [None]
